FAERS Safety Report 4810363-0 (Version None)
Quarter: 2005Q4

REPORT INFORMATION
  Report Type: 
  Country: None (occurrence: None)
  Receive Date: 20051024
  Receipt Date: 20051010
  Transmission Date: 20060501
  Serious: Yes (Disabling)
  Sender: FDA-Public Use
  Company Number: 2005126667

PATIENT
  Sex: Male

DRUGS (4)
  1. CAMPTOSAR [Suspect]
     Indication: COLON CANCER
     Dosage: (350 MG, CYCLICAL)
  2. CETUXIMAB (CETUXIMAB) [Suspect]
     Indication: COLON CANCER
  3. FLUCONAZOLE [Concomitant]
  4. ZOLEDRONIC ACID [Concomitant]

REACTIONS (6)
  - ANXIETY [None]
  - DIARRHOEA [None]
  - DIFFICULTY IN WALKING [None]
  - PALMAR-PLANTAR ERYTHRODYSAESTHESIA SYNDROME [None]
  - SKIN EXFOLIATION [None]
  - STOMATITIS [None]
